FAERS Safety Report 7560396-9 (Version None)
Quarter: 2011Q2

REPORT INFORMATION
  Report Type: 
  Country: None (occurrence: None)
  Receive Date: 20110621
  Receipt Date: 20110616
  Transmission Date: 20111010
  Serious: Yes (Death, Other)
  Sender: FDA-Public Use
  Company Number: US-AMGEN-QUU393213

PATIENT
  Sex: Male

DRUGS (2)
  1. NPLATE [Suspect]
     Dates: end: 20090902
  2. NPLATE [Suspect]
     Indication: PRODUCT USED FOR UNKNOWN INDICATION
     Dosage: 3.3 A?G/KG, UNK
     Dates: start: 20090722, end: 20090902

REACTIONS (3)
  - DRUG INEFFECTIVE [None]
  - POST PROCEDURAL INFECTION [None]
  - OFF LABEL USE [None]
